FAERS Safety Report 23688379 (Version 1)
Quarter: 2024Q1

REPORT INFORMATION
  Report Type: Spontaneous
  Country: US (occurrence: US)
  Receive Date: 20240329
  Receipt Date: 20240329
  Transmission Date: 20240410
  Serious: Yes (Other)
  Sender: FDA-Public Use
  Company Number: US-BRISTOL-MYERS SQUIBB COMPANY-2024-050281

PATIENT
  Age: 57 Year
  Sex: Male

DRUGS (4)
  1. NIVOLUMAB [Suspect]
     Active Substance: NIVOLUMAB
     Indication: Metastatic malignant melanoma
  2. IPILIMUMAB [Suspect]
     Active Substance: IPILIMUMAB
     Indication: Metastatic malignant melanoma
  3. TRAMETINIB [Concomitant]
     Active Substance: TRAMETINIB
     Indication: Metastatic malignant melanoma
     Dosage: 1 MG/DAY
  4. BINIMETINIB [Concomitant]
     Active Substance: BINIMETINIB
     Indication: Metastatic malignant melanoma

REACTIONS (6)
  - Immune-mediated hypothyroidism [Unknown]
  - Immune-mediated dermatitis [Unknown]
  - Pruritus [Unknown]
  - Pyrexia [Unknown]
  - Dyspnoea [Unknown]
  - Diarrhoea [Unknown]
